FAERS Safety Report 9228503 (Version 2)
Quarter: 2013Q3

REPORT INFORMATION
  Report Type: Spontaneous
  Country: FR (occurrence: FR)
  Receive Date: 20130412
  Receipt Date: 20130912
  Transmission Date: 20140515
  Serious: Yes (Hospitalization)
  Sender: FDA-Public Use
  Company Number: FR-GLAXOSMITHKLINE-B0880794A

PATIENT
  Age: 87 Year
  Sex: Female

DRUGS (9)
  1. ARIXTRA [Suspect]
     Indication: PRODUCT USED FOR UNKNOWN INDICATION
     Dosage: 2.5MG PER DAY
     Route: 058
     Dates: end: 20130315
  2. KARDEGIC [Suspect]
     Indication: PRODUCT USED FOR UNKNOWN INDICATION
     Dosage: 75MG PER DAY
     Route: 048
     Dates: end: 20130321
  3. DOLIPRANE [Concomitant]
     Dosage: 2TAB THREE TIMES PER DAY
     Route: 048
  4. IMOVANE [Concomitant]
     Dosage: 1TAB PER DAY
     Route: 048
  5. LASILIX [Concomitant]
     Dosage: 1TAB PER DAY
     Route: 048
  6. SPECIAFOLDINE [Concomitant]
     Dosage: 1TAB PER DAY
     Route: 048
  7. TAHOR [Concomitant]
     Dosage: 1TAB PER DAY
     Route: 048
  8. LUMIGAN [Concomitant]
     Dosage: 1DROP TWICE PER DAY
     Route: 047
  9. NEBIVOLOL [Concomitant]
     Dosage: 1UNIT PER DAY
     Route: 048

REACTIONS (6)
  - Normochromic normocytic anaemia [Recovered/Resolved]
  - Melaena [Recovered/Resolved]
  - Pallor [Unknown]
  - Inflammation [Unknown]
  - Peptic ulcer [Unknown]
  - Gastritis [Unknown]
